FAERS Safety Report 22220486 (Version 2)
Quarter: 2024Q3

REPORT INFORMATION
  Report Type: Report from Study
  Country: CZ (occurrence: CZ)
  Receive Date: 20230417
  Receipt Date: 20240715
  Transmission Date: 20241016
  Serious: Yes (Other)
  Sender: INCYTE
  Company Number: CZ-002147023-NVSC2023CZ083835

PATIENT

DRUGS (1)
  1. RUXOLITINIB [Suspect]
     Active Substance: RUXOLITINIB
     Indication: Toxicity to various agents
     Dosage: 10 MG, BID (2 X DAILY)
     Route: 065
     Dates: start: 20220815

REACTIONS (4)
  - General physical health deterioration [Unknown]
  - Product use in unapproved indication [Unknown]
  - Neutropenia [Not Recovered/Not Resolved]
  - Thrombocytopenia [Recovered/Resolved]

NARRATIVE: CASE EVENT DATE: 20220922
